FAERS Safety Report 4452226-9 (Version None)
Quarter: 2004Q3

REPORT INFORMATION
  Report Type: 
  Country: None (occurrence: None)
  Receive Date: 20040917
  Receipt Date: 20040826
  Transmission Date: 20050211
  Serious: Yes (Hospitalization, Other)
  Sender: FDA-Public Use
  Company Number: US-MERCK-0408USA02135

PATIENT
  Age: 60 Year
  Sex: Female

DRUGS (9)
  1. CADUET [Concomitant]
     Route: 065
  2. ASPIRIN [Concomitant]
     Route: 065
  3. CELEBREX [Concomitant]
     Route: 065
  4. PREMARIN [Concomitant]
     Route: 065
  5. ALLEGRA [Concomitant]
     Route: 065
  6. PROZAC [Concomitant]
     Route: 065
  7. PREVACID [Concomitant]
     Route: 065
  8. SYNTHROID [Concomitant]
     Route: 065
  9. COZAAR [Suspect]
     Route: 048
     Dates: start: 20040501

REACTIONS (2)
  - BRADYARRHYTHMIA [None]
  - CHEST PAIN [None]
